FAERS Safety Report 21160263 (Version 1)
Quarter: 2022Q3

REPORT INFORMATION
  Report Type: Report from Study
  Country: EG (occurrence: EG)
  Receive Date: 20220802
  Receipt Date: 20220802
  Transmission Date: 20221027
  Serious: Yes (Other)
  Sender: FDA-Public Use
  Company Number: EG-NOVARTISPH-NVSC2022EG173982

PATIENT
  Sex: Male

DRUGS (7)
  1. COSENTYX [Suspect]
     Active Substance: SECUKINUMAB
     Indication: Psoriasis
     Dosage: QW, (2 PENS ONCE WEEKLY FOR 4 WEEKS)
     Route: 065
     Dates: start: 2017, end: 202201
  2. COSENTYX [Suspect]
     Active Substance: SECUKINUMAB
     Dosage: QMO, 2 PENS OF COSENTYX 150 MG ONCE MONTHLY (1 PEN ONCE MONTHLY FOR 1 OR 2 TIMES) BASED ON HCP DECIS
     Route: 058
     Dates: start: 20220620
  3. HYRIMOZ [Suspect]
     Active Substance: ADALIMUMAB-ADAZ
     Indication: Psoriasis
     Dosage: 2 DOSAGE FORM, QMO, (2 PREFILLED SYRINGES OF 40 MG ONCE MONTHLY)
     Route: 065
     Dates: start: 202202, end: 202205
  4. EXFORGE [Concomitant]
     Active Substance: AMLODIPINE BESYLATE\VALSARTAN
     Indication: Hypertension
     Dosage: 1 DOSAGE FORM, QD
     Route: 065
     Dates: start: 2021
  5. VILDAGLIPTIN [Concomitant]
     Active Substance: VILDAGLIPTIN
     Indication: Diabetes mellitus
     Dosage: 1 DOSAGE FORM, QD
     Route: 065
  6. SYNJARDY [Concomitant]
     Active Substance: EMPAGLIFLOZIN\METFORMIN HYDROCHLORIDE
     Indication: Diabetes mellitus
     Dosage: 1 DOSAGE FORM, QD
     Route: 065
  7. METFORMIN HYDROCHLORIDE\VILDAGLIPTIN [Concomitant]
     Active Substance: METFORMIN HYDROCHLORIDE\VILDAGLIPTIN
     Indication: Diabetes mellitus
     Dosage: STRENGTH: 50/1000
     Route: 065

REACTIONS (4)
  - Psoriasis [Unknown]
  - Drug ineffective [Not Recovered/Not Resolved]
  - Off label use [Recovered/Resolved]
  - Off label use [Recovered/Resolved]

NARRATIVE: CASE EVENT DATE: 20170101
